FAERS Safety Report 15410015 (Version 1)
Quarter: 2018Q4

REPORT INFORMATION
  Report Type: Report from Study
  Country: IT (occurrence: IT)
  Receive Date: 20180920
  Receipt Date: 20180920
  Transmission Date: 20190204
  Serious: Yes (Hospitalization)
  Sender: FDA-Public Use
  Company Number: IT-TEVA-2018-IT-956775

PATIENT
  Age: 65 Year
  Sex: Male

DRUGS (2)
  1. ETOPOSIDE TEVA 20 MG/ML, CONCENTRATO PER SOLUZIONE PER INFUSIONE. [Suspect]
     Active Substance: ETOPOSIDE
     Indication: LUNG CARCINOMA CELL TYPE UNSPECIFIED STAGE IV
     Route: 041
     Dates: start: 20180724, end: 20180726
  2. CARBOPLATINO TEVA 10 MG/ML [Suspect]
     Active Substance: CARBOPLATIN
     Indication: LUNG CARCINOMA CELL TYPE UNSPECIFIED STAGE IV
     Route: 041
     Dates: start: 20180724, end: 20180726

REACTIONS (2)
  - Septic shock [Recovering/Resolving]
  - Febrile neutropenia [Recovering/Resolving]

NARRATIVE: CASE EVENT DATE: 20180806
